FAERS Safety Report 5803890-0 (Version None)
Quarter: 2008Q3

REPORT INFORMATION
  Report Type: 
  Country: None (occurrence: None)
  Receive Date: 20080708
  Receipt Date: 20080626
  Transmission Date: 20090109
  Serious: Yes (Other)
  Sender: FDA-Public Use
  Company Number: JP-PFIZER INC-2008048051

PATIENT
  Sex: Male
  Weight: 70 kg

DRUGS (1)
  1. CHANTIX [Suspect]
     Indication: EX-TOBACCO USER
     Route: 048

REACTIONS (6)
  - DYSPNOEA [None]
  - HEADACHE [None]
  - NAUSEA [None]
  - PARALYSIS [None]
  - PULSE ABSENT [None]
  - SUPRAVENTRICULAR TACHYCARDIA [None]
